FAERS Safety Report 8611206-X (Version None)
Quarter: 2012Q3

REPORT INFORMATION
  Report Type: 
  Country: None (occurrence: None)
  Receive Date: 20120822
  Receipt Date: 20120814
  Transmission Date: 20120928
  Serious: Yes (Other)
  Sender: FDA-Public Use
  Company Number: CA-JNJFOC-20120806787

PATIENT
  Sex: Female
  Weight: 75 kg

DRUGS (14)
  1. GABAPENTIN [Concomitant]
     Route: 065
  2. SYNTHROID [Concomitant]
     Route: 065
  3. REMICADE [Suspect]
     Indication: CROHN'S DISEASE
     Dosage: SIXTH INFUSION
     Route: 042
     Dates: start: 20120620
  4. DILAUDID [Concomitant]
     Route: 065
  5. ZOPICLONE [Concomitant]
     Route: 065
  6. REMICADE [Suspect]
     Route: 042
     Dates: start: 20111125
  7. ESCITALOPRAM [Concomitant]
     Route: 065
  8. ATROVENT [Concomitant]
     Route: 065
  9. CELEBREX [Concomitant]
     Route: 065
  10. QUETIAPINE [Concomitant]
     Route: 065
  11. DOMPERIDONE [Concomitant]
     Route: 065
  12. IMURAN [Concomitant]
     Route: 065
  13. LANSOPRAZOLE [Concomitant]
     Route: 065
  14. SCOPOLAMINE [Concomitant]
     Route: 065

REACTIONS (1)
  - BENIGN BREAST NEOPLASM [None]
